FAERS Safety Report 4348216-7 (Version None)
Quarter: 2004Q2

REPORT INFORMATION
  Report Type: 
  Country: None (occurrence: None)
  Receive Date: 20040422
  Receipt Date: 20040407
  Transmission Date: 20050107
  Serious: Yes (Other)
  Sender: FDA-Public Use
  Company Number: USA031254756

PATIENT
  Age: 61 Year
  Sex: Female

DRUGS (1)
  1. FORTEO [Suspect]
     Indication: OSTEOPOROSIS
     Dosage: 20 UG/ 1 DAY
     Dates: start: 20031201, end: 20040406

REACTIONS (11)
  - ASTHENIA [None]
  - DIFFICULTY IN WALKING [None]
  - FEELING ABNORMAL [None]
  - INJECTION SITE PAIN [None]
  - OVERDOSE [None]
  - PAIN IN EXTREMITY [None]
  - PERIPHERAL NERVE INJURY [None]
  - PHARMACEUTICAL PRODUCT COMPLAINT [None]
  - RASH MACULAR [None]
  - RASH VESICULAR [None]
  - SQUAMOUS CELL CARCINOMA OF SKIN [None]
